FAERS Safety Report 20678066 (Version 2)
Quarter: 2022Q3

REPORT INFORMATION
  Report Type: Spontaneous
  Country: US (occurrence: US)
  Receive Date: 20220406
  Receipt Date: 20220818
  Transmission Date: 20221026
  Serious: Yes (Death, Life-Threatening, Hospitalization, Other)
  Sender: FDA-Public Use
  Company Number: None

PATIENT
  Age: 65 Year
  Sex: Male

DRUGS (3)
  1. TAMSULOSIN HYDROCHLORIDE [Suspect]
     Active Substance: TAMSULOSIN HYDROCHLORIDE
     Indication: Suicide attempt
     Dosage: 12 MILLIGRAM, (0.4 MG?30 TABLETS)
     Route: 048
  2. GENVOYA [Suspect]
     Active Substance: COBICISTAT\ELVITEGRAVIR\EMTRICITABINE\TENOFOVIR ALAFENAMIDE FUMARATE
     Indication: Suicide attempt
     Dosage: 150-150-200-10 MG (30 TABLETS)
     Route: 048
  3. PREZISTA [Suspect]
     Active Substance: DARUNAVIR ETHANOLATE
     Indication: Suicide attempt
     Dosage: 24000 MILLIGRAM, (800 MG?30 TABLETS)
     Route: 048

REACTIONS (6)
  - Overdose [Fatal]
  - Toxicity to various agents [Fatal]
  - Bundle branch block right [Fatal]
  - Blood pressure decreased [Fatal]
  - Pulseless electrical activity [Fatal]
  - Mental status changes [Unknown]
